FAERS Safety Report 4325618-6 (Version None)
Quarter: 2004Q1

REPORT INFORMATION
  Report Type: 
  Country: None (occurrence: None)
  Receive Date: 20040324
  Receipt Date: 20040312
  Transmission Date: 20041129
  Serious: Yes (Death)
  Sender: FDA-Public Use
  Company Number: US-JNJFOC-20040303190

PATIENT
  Age: 71 Year
  Sex: Female

DRUGS (12)
  1. REMICADE [Suspect]
     Indication: RHEUMATOID ARTHRITIS
     Dosage: INTRAVENOUS
     Route: 042
     Dates: start: 20010510, end: 20020709
  2. THYROXIN (LEVOTHYROXINE SODIUM) [Concomitant]
  3. PREMARIN [Concomitant]
  4. AMIODARONE HCL [Concomitant]
  5. FOLIC ACID [Concomitant]
  6. AVAPRO [Concomitant]
  7. LANOXIN [Concomitant]
  8. COUMADIN [Concomitant]
  9. POTASSIUM (POTASSIUM) [Concomitant]
  10. LASIX [Concomitant]
  11. CALCIUM (CALCIUM) [Concomitant]
  12. DARVOCET [Concomitant]

REACTIONS (1)
  - DEATH [None]
